FAERS Safety Report 15563119 (Version 1)
Quarter: 2018Q4

REPORT INFORMATION
  Report Type: Spontaneous
  Country: IT (occurrence: IT)
  Receive Date: 20181029
  Receipt Date: 20181029
  Transmission Date: 20190205
  Serious: Yes (Hospitalization)
  Sender: FDA-Public Use
  Company Number: IT-JNJFOC-20181037605

PATIENT
  Age: 73 Year
  Sex: Female
  Weight: 64 kg

DRUGS (4)
  1. METFORMIN [Concomitant]
     Active Substance: METFORMIN HYDROCHLORIDE
     Route: 048
  2. RANITIDINE. [Concomitant]
     Active Substance: RANITIDINE
     Route: 048
  3. RYTMONORM [Concomitant]
     Active Substance: PROPAFENONE
     Route: 048
  4. XARELTO [Suspect]
     Active Substance: RIVAROXABAN
     Indication: ATRIAL FIBRILLATION
     Route: 048
     Dates: start: 20170917, end: 20180906

REACTIONS (1)
  - Haemolytic anaemia [Recovered/Resolved]

NARRATIVE: CASE EVENT DATE: 20180906
